FAERS Safety Report 7350240-7 (Version None)
Quarter: 2011Q1

REPORT INFORMATION
  Report Type: 
  Country: None (occurrence: None)
  Receive Date: 20110222
  Receipt Date: 20101108
  Transmission Date: 20110831
  Serious: Yes (Other)
  Sender: FDA-Public Use
  Company Number: WAES 1011USA00926

PATIENT
  Sex: Male

DRUGS (2)
  1. NIACIN [Concomitant]
  2. ZOCOR [Suspect]
     Indication: PRODUCT USED FOR UNKNOWN INDICATION
     Dosage: PO
     Route: 048

REACTIONS (2)
  - CAROTID ARTERY OCCLUSION [None]
  - RHABDOMYOLYSIS [None]
